FAERS Safety Report 4935146-2 (Version None)
Quarter: 2006Q1

REPORT INFORMATION
  Report Type: 
  Country: None (occurrence: None)
  Receive Date: 20060302
  Receipt Date: 20060217
  Transmission Date: 20060701
  Serious: Yes (Other)
  Sender: FDA-Public Use
  Company Number: 2006025416

PATIENT
  Sex: Female
  Weight: 129.7287 kg

DRUGS (1)
  1. ZMAX [Suspect]
     Indication: GASTRIC INFECTION
     Dosage: 2000 MG, ONCE
     Dates: start: 20051101

REACTIONS (8)
  - ABDOMINAL PAIN UPPER [None]
  - ANURIA [None]
  - BODY TEMPERATURE INCREASED [None]
  - DIARRHOEA [None]
  - GASTRIC INFECTION [None]
  - ORAL INTAKE REDUCED [None]
  - POLLAKIURIA [None]
  - POLYDIPSIA [None]
